FAERS Safety Report 10238977 (Version 1)
Quarter: 2014Q2

REPORT INFORMATION
  Report Type: Spontaneous
  Country: US (occurrence: None)
  Receive Date: 20140612
  Receipt Date: 20140612
  Transmission Date: 20141212
  Serious: Yes (Death)
  Sender: FDA-Public Use
  Company Number: UNT-2014-001517

PATIENT
  Age: 68 Year
  Sex: Female
  Weight: 72.6 kg

DRUGS (2)
  1. TYVASO [Suspect]
     Indication: COR PULMONALE CHRONIC
     Route: 055
     Dates: start: 20131014
  2. SILDENAFIL (SILDENAFIL) [Concomitant]

REACTIONS (1)
  - Death [None]
